FAERS Safety Report 9882958 (Version 1)
Quarter: 2014Q1

REPORT INFORMATION
  Report Type: Spontaneous
  Country: US (occurrence: None)
  Receive Date: 20140205
  Receipt Date: 20140205
  Transmission Date: 20141002
  Serious: Yes (Hospitalization)
  Sender: FDA-Public Use
  Company Number: 2014P1000598

PATIENT
  Age: 49 Year
  Sex: Male

DRUGS (3)
  1. FENTANYL [Suspect]
     Route: 042
  2. HEROIN [Suspect]
     Route: 042
  3. COCAINE [Concomitant]

REACTIONS (26)
  - VIIth nerve paralysis [None]
  - Toothache [None]
  - Back pain [None]
  - Splenic infarction [None]
  - Respiratory failure [None]
  - Pneumonia aspiration [None]
  - Acute respiratory distress syndrome [None]
  - Anaemia [None]
  - Thrombocytopenia [None]
  - Renal tubular necrosis [None]
  - Glomerulonephritis proliferative [None]
  - Hepatitis C [None]
  - Glomerulonephritis [None]
  - Haemodialysis [None]
  - Septic embolus [None]
  - Dialysis [None]
  - Drug abuse [None]
  - Endocarditis bacterial [None]
  - Wrong technique in drug usage process [None]
  - Haemophilus test positive [None]
  - Streptococcus test positive [None]
  - Actinomyces test positive [None]
  - Neisseria test positive [None]
  - Tricuspid valve incompetence [None]
  - Pulmonary arterial pressure increased [None]
  - Pleural effusion [None]
